FAERS Safety Report 24181469 (Version 1)
Quarter: 2024Q3

REPORT INFORMATION
  Report Type: Spontaneous
  Country: US (occurrence: None)
  Receive Date: 20240807
  Receipt Date: 20240807
  Transmission Date: 20241016
  Serious: Yes (Death, Other)
  Sender: MDD OPERATIONS
  Company Number: US-MDD US Operations-MDD202407-002668

PATIENT
  Age: 77 Year
  Sex: Male

DRUGS (14)
  1. APOKYN [Suspect]
     Active Substance: APOMORPHINE HYDROCHLORIDE
     Indication: Product used for unknown indication
     Dosage: NOT PROVIDED
  2. CARBIDOPA\LEVODOPA [Concomitant]
     Active Substance: CARBIDOPA\LEVODOPA
     Dosage: NOT PROVIDED
  3. ARTANE [Concomitant]
     Active Substance: TRIHEXYPHENIDYL HYDROCHLORIDE
     Dosage: NOT PROVIDED
  4. SIMVASTATIN [Concomitant]
     Active Substance: SIMVASTATIN
     Dosage: NOT PROVIDED
  5. Benazepril hydrochlorothiazide [Concomitant]
     Indication: Blood pressure measurement
     Dosage: NOT PROVIDED
  6. TAMSULOSIN [Concomitant]
     Active Substance: TAMSULOSIN
     Dosage: NOT PROVIDED
  7. NITROFURANTOIN [Concomitant]
     Active Substance: NITROFURANTOIN
     Dosage: NOT PROVIDED
  8. SEROQUEL [Concomitant]
     Active Substance: QUETIAPINE FUMARATE
     Dosage: NOT PROVIDED
  9. METFORMIN [Concomitant]
     Active Substance: METFORMIN HYDROCHLORIDE
     Indication: Diabetes mellitus
     Dosage: NOT PROVIDED
  10. NATEGLINIDE [Concomitant]
     Active Substance: NATEGLINIDE
     Indication: Diabetes mellitus
     Dosage: NOT PROVIDED
  11. VITAMIN D3 [Concomitant]
     Active Substance: CHOLECALCIFEROL
     Dosage: NOT PROVIDED
  12. IRON [Concomitant]
     Active Substance: IRON
     Dosage: NOT PROVIDED
  13. OCUVITE [Concomitant]
     Active Substance: VITAMINS
     Dosage: NOT PROVIDED
  14. METFORMIN [Concomitant]
     Active Substance: METFORMIN HYDROCHLORIDE
     Dosage: NOT PROVIDED

REACTIONS (3)
  - Parkinson^s disease [Fatal]
  - Respiratory arrest [Fatal]
  - COVID-19 [Unknown]

NARRATIVE: CASE EVENT DATE: 20240721
